FAERS Safety Report 6377664-9 (Version None)
Quarter: 2009Q3

REPORT INFORMATION
  Report Type: 
  Country: None (occurrence: None)
  Receive Date: 20090921
  Receipt Date: 20090911
  Transmission Date: 20100115
  Serious: Yes (Other)
  Sender: FDA-Public Use
  Company Number: GXKR2009GB10191

PATIENT
  Age: 60 Year
  Sex: Male

DRUGS (2)
  1. CO-CODAMOL (NGX) (ACETAMINOPHEN (PARACETAMOL), CODEINE PHOSPHATE) UNKN [Suspect]
     Indication: OSTEOARTHRITIS
     Dosage: ORAL
     Route: 048
     Dates: start: 19980101
  2. LYRICA [Suspect]
     Indication: NEURALGIA
     Dosage: 100 MG, ORAL
     Route: 048
     Dates: start: 20081203, end: 20090312

REACTIONS (2)
  - ACQUIRED HAEMOPHILIA [None]
  - NEURALGIA [None]
